FAERS Safety Report 19247316 (Version 4)
Quarter: 2021Q2

REPORT INFORMATION
  Report Type: Spontaneous
  Country: CA (occurrence: CA)
  Receive Date: 20210512
  Receipt Date: 20210618
  Transmission Date: 20210717
  Serious: Yes (Other)
  Sender: FDA-Public Use
  Company Number: CA-BAYER-2021-137182

PATIENT
  Age: 25 Year
  Sex: Female

DRUGS (1)
  1. MIRENA [Suspect]
     Active Substance: LEVONORGESTREL
     Indication: CONTRACEPTION
     Dosage: 20 ?G PER DAY, CONTINUOUSLY
     Route: 015
     Dates: start: 2018

REACTIONS (6)
  - Device breakage [None]
  - Device dislocation [None]
  - Complication of device removal [None]
  - Device issue [None]
  - Medical device discomfort [None]
  - Complication of device removal [None]

NARRATIVE: CASE EVENT DATE: 20210430
